FAERS Safety Report 11323961 (Version 2)
Quarter: 2016Q3

REPORT INFORMATION
  Report Type: Report from Study
  Country: IL (occurrence: IL)
  Receive Date: 20150730
  Receipt Date: 20160922
  Transmission Date: 20161109
  Serious: Yes (Hospitalization)
  Sender: FDA-Public Use
  Company Number: IL-ABBVIE-15P-082-1432657-00

PATIENT
  Age: 55 Year
  Sex: Female

DRUGS (4)
  1. DUODOPA [Suspect]
     Active Substance: CARBIDOPA\LEVODOPA
     Indication: PARKINSON^S DISEASE
     Route: 065
     Dates: start: 20150713, end: 20150722
  2. DUODOPA [Suspect]
     Active Substance: CARBIDOPA\LEVODOPA
     Dosage: INCREASED DUDOPA
     Route: 050
     Dates: start: 20150726
  3. DUODOPA [Suspect]
     Active Substance: CARBIDOPA\LEVODOPA
     Dosage: REDUCED DOSAGE FROM 1250 TO 1150 MG/DAY
     Route: 050
     Dates: start: 20150722, end: 20150726
  4. ENSURE [Suspect]
     Active Substance: AMINO ACIDS\DEXTROSE\ELECTROLYTES NOS\SOYBEAN OIL\VITAMINS
     Indication: PRODUCT USED FOR UNKNOWN INDICATION
     Route: 065

REACTIONS (13)
  - Fall [Unknown]
  - Feeling abnormal [Unknown]
  - Speech disorder [Unknown]
  - Hypophagia [Unknown]
  - Anxiety [Unknown]
  - Parkinson^s disease [Unknown]
  - Tremor [Unknown]
  - Constipation [Unknown]
  - Tremor [Unknown]
  - Dyskinesia [Not Recovered/Not Resolved]
  - Balance disorder [Not Recovered/Not Resolved]
  - Intentional product use issue [Unknown]
  - Depressed mood [Unknown]

NARRATIVE: CASE EVENT DATE: 201507
